FAERS Safety Report 5456397-7 (Version None)
Quarter: 2007Q3

REPORT INFORMATION
  Report Type: 
  Country: None (occurrence: None)
  Receive Date: 20070918
  Receipt Date: 20070912
  Transmission Date: 20080115
  Serious: Yes (Hospitalization)
  Sender: FDA-Public Use
  Company Number: US-SANOFI-SYNTHELABO-F03200700165

PATIENT
  Sex: Male
  Weight: 108 kg

DRUGS (18)
  1. ELOXATIN [Suspect]
     Indication: HEPATIC NEOPLASM MALIGNANT
     Route: 042
     Dates: start: 20070810, end: 20070810
  2. THORAZINE [Concomitant]
     Dosage: UNK
     Route: 065
  3. SPIRONOLACTONE [Concomitant]
     Dosage: UNK
     Route: 048
  4. PROCHLORPERAZINE [Concomitant]
     Dosage: UNK
     Route: 065
  5. ZOFRAN [Concomitant]
     Dosage: UNK
     Route: 065
  6. QUESTRAN [Concomitant]
     Dosage: UNK
     Route: 048
  7. PHENERGAN HCL [Concomitant]
     Dosage: UNK
     Route: 065
  8. OPIUM TINCTURE [Concomitant]
     Dosage: UNK
     Route: 065
  9. MEGACE [Concomitant]
     Dosage: UNK
     Route: 048
  10. LOPRESSOR [Concomitant]
     Dosage: UNK
     Route: 048
  11. FUROSEMIDE [Concomitant]
     Dosage: UNK
     Route: 065
  12. LISINOPRIL AND HYDROCHLOROTHIAZIDE [Concomitant]
     Dosage: UNK
     Route: 048
  13. IMODIUM [Concomitant]
     Dosage: UNK
     Route: 048
  14. IRON [Concomitant]
     Dosage: UNK
     Route: 065
  15. CAPECITABINE [Suspect]
     Indication: HEPATIC NEOPLASM MALIGNANT
     Dosage: 850 MG/M2 TWICE DAILY ON DAYS 1-14 OF 21
     Route: 048
  16. CETUXIMAB [Suspect]
     Indication: HEPATIC NEOPLASM MALIGNANT
     Dosage: 400 MG/M2 (FIRST DOSE); THEN 250 MG/M2 WEEKLY
     Route: 042
     Dates: start: 20070817, end: 20070817
  17. AVODART [Concomitant]
     Dosage: UNK
     Route: 048
  18. ACIPHEX [Concomitant]
     Dosage: UNK
     Route: 048

REACTIONS (8)
  - DEHYDRATION [None]
  - DIARRHOEA [None]
  - FATIGUE [None]
  - HYPERKALAEMIA [None]
  - METABOLIC ACIDOSIS [None]
  - MUCOSAL INFLAMMATION [None]
  - PANCREATITIS [None]
  - URINARY TRACT INFECTION [None]
